FAERS Safety Report 21675239 (Version 1)
Quarter: 2022Q4

REPORT INFORMATION
  Report Type: Spontaneous
  Country: US (occurrence: None)
  Receive Date: 20221201
  Receipt Date: 20221201
  Transmission Date: 20230113
  Serious: No
  Sender: FDA-Public Use
  Company Number: None

PATIENT
  Sex: Female
  Weight: 93.44 kg

DRUGS (27)
  1. CYCLOPHOSPHAMIDE [Suspect]
     Active Substance: CYCLOPHOSPHAMIDE
     Indication: Plasma cell myeloma
     Dosage: FREQUENCY : WEEKLY;?
     Route: 048
     Dates: start: 20220602
  2. ALBUTEROL [Concomitant]
     Active Substance: ALBUTEROL
  3. ASPIRIN [Concomitant]
  4. CALCITRIOL [Concomitant]
     Active Substance: CALCITRIOL
  5. COLACE [Concomitant]
  6. CRANBERRY [Concomitant]
  7. CYMBALTA [Concomitant]
  8. DEXAMETHASONE [Concomitant]
  9. DIFLUCAN [Concomitant]
  10. FISH OIL CONCENTRATE [Concomitant]
  11. HYDRALAZINE [Concomitant]
  12. JANUVIA [Concomitant]
  13. LASIX [Concomitant]
  14. LIDODERM [Concomitant]
  15. MAGNESIUM OXIDE [Concomitant]
  16. MELATONIN [Concomitant]
     Active Substance: MELATONIN
  17. METOPROLOL [Concomitant]
     Active Substance: METOPROLOL
  18. MIRALAX [Concomitant]
  19. MULTIVITAMIN [Concomitant]
  20. PLAVIX [Concomitant]
  21. PROTONIX [Concomitant]
  22. SINGULAIR [Concomitant]
  23. VALTREX [Concomitant]
  24. VITAMIN D3 [Concomitant]
  25. VOLTAREN [Concomitant]
  26. ZOFRAN [Concomitant]
  27. ZYRTEC [Concomitant]
     Active Substance: CETIRIZINE HYDROCHLORIDE

REACTIONS (2)
  - Asthenia [None]
  - Drug intolerance [None]
